FAERS Safety Report 4490197-X (Version None)
Quarter: 2004Q4

REPORT INFORMATION
  Report Type: 
  Country: None (occurrence: None)
  Receive Date: 20041027
  Receipt Date: 20041014
  Transmission Date: 20050328
  Serious: Yes (Other)
  Sender: FDA-Public Use
  Company Number: 2004068092

PATIENT
  Age: 48 Year
  Sex: Male

DRUGS (11)
  1. ZOLOFT [Suspect]
     Indication: DEPRESSION
     Dosage: 100 MG (100 MG, 1 IN 1 D), ORAL
     Route: 048
     Dates: start: 20020401
  2. TRAZODONE HCL [Concomitant]
  3. TENOFOVIR DISOPROXIL FUMARATE (TENOFOVIR DISOPROXIL FUMARATE) [Concomitant]
  4. ZIDOVUDINE W/LAMIVUDINE (LAMIVUDINE, ZIDOVUDINE) [Concomitant]
  5. ASPIRIN [Concomitant]
  6. NICOTINIC ACID [Concomitant]
  7. ROFECOXIB [Concomitant]
  8. VALACICLOVIR HYDROCHLORIDE (VALACICLOVIR HYDROCHLORIDE) [Concomitant]
  9. LITHIUM CARBONATE [Concomitant]
  10. TRAZODONE HCL [Concomitant]
  11. TRIOBE (CYANOCOBALAMIN, FOLIC ACID, PYRIDOXINE) [Concomitant]

REACTIONS (2)
  - MYOCLONUS [None]
  - TREMOR [None]
